FAERS Safety Report 8574006-5 (Version None)
Quarter: 2012Q2

REPORT INFORMATION
  Report Type: 
  Country: None (occurrence: None)
  Receive Date: 20120423
  Receipt Date: 20100511
  Transmission Date: 20120825
  Serious: Yes (Other)
  Sender: FDA-Public Use
  Company Number: PHHY2010US29855

PATIENT
  Age: 36 Year
  Sex: Male
  Weight: 70 kg

DRUGS (24)
  1. NIFEDIPINE (NIFEDIPINE) TABLET [Concomitant]
  2. SODIUM BICARBONATE IN PLASTIC CONTAINER [Concomitant]
  3. DOCUSATE SODIUM (DOCUSATE SODIUM) [Concomitant]
  4. VITAMIN D [Concomitant]
  5. EXJADE [Suspect]
     Indication: IRON OVERLOAD
     Dosage: 500 MG/DAY, ORAL
     Route: 048
     Dates: start: 20100410, end: 20100511
  6. LYRICA [Concomitant]
  7. MORPHINE [Concomitant]
  8. MAGNESIUM HYDROXIDE TAB [Concomitant]
  9. PAXIL [Concomitant]
  10. RENAGEL [Concomitant]
  11. ZOCOR [Concomitant]
  12. VICODIN [Concomitant]
  13. LORTAB [Concomitant]
  14. FOLIC ACID [Concomitant]
  15. CALCIUM CARBONATE [Concomitant]
  16. LAMICTAL [Concomitant]
  17. TYLENOL W/CODEINE NO. 4 (CODEINE PHOSPHATE, PARACETAMOL) [Concomitant]
  18. FELBATOL [Concomitant]
  19. HYDREA [Concomitant]
  20. CALCITRIOL [Concomitant]
  21. KAYEXALATE [Concomitant]
  22. DRISDOL [Concomitant]
  23. KEPPRA [Concomitant]
  24. ASPIRIN [Concomitant]

REACTIONS (2)
  - RENAL FAILURE [None]
  - RENAL IMPAIRMENT [None]
